FAERS Safety Report 15931473 (Version 3)
Quarter: 2019Q3

REPORT INFORMATION
  Report Type: Spontaneous
  Country: IT (occurrence: IT)
  Receive Date: 20190207
  Receipt Date: 20190711
  Transmission Date: 20191004
  Serious: Yes (Hospitalization, Other)
  Sender: FDA-Public Use
  Company Number: IT-ACCORD-106750

PATIENT
  Age: 25 Year
  Sex: Female

DRUGS (1)
  1. ARIPIPRAZOLE. [Suspect]
     Active Substance: ARIPIPRAZOLE
     Dosage: 70MG SINGLE DOSE, 14 TABLETS OF 5MG
     Route: 048

REACTIONS (4)
  - Drug abuse [Unknown]
  - Atrioventricular block [Recovered/Resolved]
  - Overdose [Unknown]
  - Suicide attempt [Unknown]
